FAERS Safety Report 7630715-3 (Version None)
Quarter: 2011Q3

REPORT INFORMATION
  Report Type: 
  Country: None (occurrence: None)
  Receive Date: 20110722
  Receipt Date: 20110713
  Transmission Date: 20111222
  Serious: Yes (Other)
  Sender: FDA-Public Use
  Company Number: US-ASTRAZENECA-2011SE41894

PATIENT
  Age: 65 Year
  Sex: Female

DRUGS (3)
  1. SEREVENT [Concomitant]
  2. CORTISONE ACETATE [Concomitant]
  3. SYMBICORT [Suspect]
     Indication: CHRONIC OBSTRUCTIVE PULMONARY DISEASE
     Dosage: TOTAL DAILY: 640 MCG
     Route: 055

REACTIONS (5)
  - CATARACT OPERATION [None]
  - NERVOUSNESS [None]
  - TEMPORAL ARTERITIS [None]
  - CATARACT [None]
  - OFF LABEL USE [None]
